FAERS Safety Report 22312035 (Version 1)
Quarter: 2023Q2

REPORT INFORMATION
  Report Type: Spontaneous
  Country: JP (occurrence: JP)
  Receive Date: 20230512
  Receipt Date: 20230512
  Transmission Date: 20230721
  Serious: Yes (Other)
  Sender: FDA-Public Use
  Company Number: JP-AJANTA-2023AJA00074

PATIENT
  Age: 67 Year
  Sex: Female

DRUGS (4)
  1. CLARITHROMYCIN [Suspect]
     Active Substance: CLARITHROMYCIN
     Indication: Mycobacterium avium complex infection
  2. RIFAMPIN [Suspect]
     Active Substance: RIFAMPIN
     Indication: Mycobacterium avium complex infection
  3. ETHAMBUTOL [Concomitant]
     Active Substance: ETHAMBUTOL HYDROCHLORIDE
     Dosage: ONE YEAR
  4. SITAFLOXACIN [Suspect]
     Active Substance: SITAFLOXACIN
     Indication: Mycobacterium avium complex infection

REACTIONS (3)
  - Treatment failure [Unknown]
  - Drug resistance [Fatal]
  - Haemoptysis [Unknown]
